FAERS Safety Report 5032279-X (Version None)
Quarter: 2006Q2

REPORT INFORMATION
  Report Type: 
  Country: None (occurrence: None)
  Receive Date: 20060619
  Receipt Date: 20060608
  Transmission Date: 20061013
  Serious: Yes (Hospitalization)
  Sender: FDA-Public Use
  Company Number: 2006-06-0677

PATIENT
  Age: 53 Year
  Sex: Female

DRUGS (5)
  1. PEG-INTRON [Suspect]
     Indication: HEPATITIS C
     Dosage: 150 MCG QWK SUBCUTANEOUS
     Route: 058
     Dates: start: 20060310
  2. RIBAVIRIN [Suspect]
     Indication: HEPATITIS C
     Dosage: 600 MB BID ORAL
     Route: 048
     Dates: start: 20060310
  3. PREMARIN [Concomitant]
  4. RELEASE TABLET [Concomitant]
  5. LISINOPRIL/HYDROCHLOROTHIAZIDE TABLETS [Concomitant]

REACTIONS (5)
  - ANAEMIA [None]
  - ASTHENIA [None]
  - CONSTIPATION [None]
  - DEHYDRATION [None]
  - DIARRHOEA [None]
